FAERS Safety Report 6085412-5 (Version None)
Quarter: 2009Q1

REPORT INFORMATION
  Report Type: 
  Country: None (occurrence: None)
  Receive Date: 20090217
  Receipt Date: 20090206
  Transmission Date: 20090719
  Serious: Yes (Other)
  Sender: FDA-Public Use
  Company Number: B0559008A

PATIENT
  Age: 4 Year
  Sex: Male

DRUGS (3)
  1. LAMOTRIGINE              (FORMULATION UNKNOWN) (GENERIC) [Suspect]
     Indication: EPILEPSY
     Dosage: 25 MG/THREE TIMES PER DAY/
  2. VALPROIC ACID [Suspect]
     Indication: EPILEPSY
     Dosage: 300 MG
  3. CLOBAZAM              (FORMULATION UNKNOWN) (CLOBAZAM) [Suspect]
     Indication: EPILEPSY
     Dosage: 10 MG/TWICE PER DAY

REACTIONS (1)
  - STEVENS-JOHNSON SYNDROME [None]
